FAERS Safety Report 4509785-7 (Version None)
Quarter: 2004Q4

REPORT INFORMATION
  Report Type: 
  Country: None (occurrence: None)
  Receive Date: 20041124
  Receipt Date: 20040412
  Transmission Date: 20050328
  Serious: No
  Sender: FDA-Public Use
  Company Number: US-BRISTOL-MYERS SQUIBB COMPANY-12557435

PATIENT
  Age: 54 Year
  Sex: Male

DRUGS (3)
  1. AVALIDE [Suspect]
     Indication: HYPERTENSION
     Dosage: DOSAGE: 150MG/12.5MG DAILY
     Route: 048
  2. PRAVACHOL [Concomitant]
  3. HYDROXYZINE [Concomitant]

REACTIONS (1)
  - HYPOAESTHESIA [None]
